FAERS Safety Report 19495948 (Version 1)
Quarter: 2021Q3

REPORT INFORMATION
  Report Type: Spontaneous
  Country: FR (occurrence: FR)
  Receive Date: 20210706
  Receipt Date: 20210706
  Transmission Date: 20211014
  Serious: Yes (Hospitalization)
  Sender: FDA-Public Use
  Company Number: FR-TEVA-2021-FR-1930002

PATIENT
  Age: 27 Year
  Sex: Female

DRUGS (10)
  1. VALACICLOVIR [Concomitant]
     Active Substance: VALACYCLOVIR HYDROCHLORIDE
     Indication: INFECTION PROPHYLAXIS
     Dosage: 500 MG
     Route: 048
     Dates: start: 20191129
  2. METHOTREXATE. [Suspect]
     Active Substance: METHOTREXATE
     Dosage: 15 MG
     Route: 042
     Dates: start: 20191018, end: 20200721
  3. PANTOPRAZOLE [Concomitant]
     Active Substance: PANTOPRAZOLE
     Indication: ABDOMINAL PAIN UPPER
     Dosage: 20 MG
     Route: 048
     Dates: start: 20191129
  4. DUPHASTON [Concomitant]
     Active Substance: DYDROGESTERONE
     Indication: DYSMENORRHOEA
     Dosage: 10 MG
     Route: 048
     Dates: start: 20191210
  5. METHOTREXATE. [Suspect]
     Active Substance: METHOTREXATE
     Indication: ACUTE LYMPHOCYTIC LEUKAEMIA
     Dosage: 43.5 MG
     Route: 048
     Dates: start: 20200820, end: 20210531
  6. INSULINE [Concomitant]
     Active Substance: INSULIN NOS
     Indication: TYPE 1 DIABETES MELLITUS
     Route: 058
     Dates: start: 1995
  7. BACTRIM [Concomitant]
     Active Substance: SULFAMETHOXAZOLE\TRIMETHOPRIM
     Indication: PNEUMOCYSTIS JIROVECII INFECTION
     Dosage: 3 DF
     Route: 048
     Dates: start: 20191129
  8. VINCRISTINE (SULFATE DE) [Suspect]
     Active Substance: VINCRISTINE SULFATE
     Indication: ACUTE LYMPHOCYTIC LEUKAEMIA
     Dosage: 2 MG
     Route: 065
     Dates: start: 20191105, end: 20210518
  9. PURINETHOL [Suspect]
     Active Substance: MERCAPTOPURINE
     Indication: ACUTE LYMPHOCYTIC LEUKAEMIA
     Dosage: 100 MG TWICE PER CYCLE, 200 MG
     Route: 048
     Dates: start: 20200614, end: 20210531
  10. BLINCYTO [Concomitant]
     Active Substance: BLINATUMOMAB
     Indication: ACUTE LYMPHOCYTIC LEUKAEMIA
     Dosage: BETWEEN 54 MCG AND 112 MCG AT EACH TREATMENT
     Route: 042
     Dates: start: 20200205, end: 20201211

REACTIONS (1)
  - Interstitial lung disease [Recovering/Resolving]

NARRATIVE: CASE EVENT DATE: 20210518
